FAERS Safety Report 9769115 (Version 1)
Quarter: 2013Q4

REPORT INFORMATION
  Report Type: Spontaneous
  Country: US (occurrence: US)
  Receive Date: 20131218
  Receipt Date: 20131218
  Transmission Date: 20140711
  Serious: Yes (Hospitalization)
  Sender: FDA-Public Use
  Company Number: 2012SP000633

PATIENT
  Age: 78 Year
  Sex: Female
  Weight: 65 kg

DRUGS (13)
  1. VANCOMYCIN [Suspect]
     Indication: THROMBOPHLEBITIS
  2. VANCOMYCIN [Suspect]
     Indication: THROMBOPHLEBITIS
  3. CEFEPIME [Suspect]
     Indication: PRODUCT USED FOR UNKNOWN INDICATION
  4. FILGRASTIM [Suspect]
     Indication: NEUTROPENIA
     Route: 058
  5. FILGRASTIM [Suspect]
     Indication: NEUTROPENIA
     Route: 058
  6. ERYTHROPOIETIN [Suspect]
     Indication: PRODUCT USED FOR UNKNOWN INDICATION
  7. AZTREONAM [Suspect]
     Indication: THROMBOPHLEBITIS
  8. AMIKACIN [Suspect]
     Indication: PRODUCT USED FOR UNKNOWN INDICATION
  9. PREDNISONE [Concomitant]
  10. LISINOPRIL [Concomitant]
  11. ASPIRIN [Concomitant]
  12. SIMVASTATIN [Concomitant]
  13. GLIPIZIDE [Concomitant]

REACTIONS (2)
  - Agranulocytosis [Recovered/Resolved]
  - Neutropenia [Recovered/Resolved]
